FAERS Safety Report 21410599 (Version 4)
Quarter: 2022Q4

REPORT INFORMATION
  Report Type: Report from Study
  Country: US (occurrence: US)
  Receive Date: 20221005
  Receipt Date: 20221219
  Transmission Date: 20230112
  Serious: Yes (Other)
  Sender: FDA-Public Use
  Company Number: US-NOVARTISPH-NVSC2022US221770

PATIENT
  Sex: Female

DRUGS (6)
  1. KISQALI [Suspect]
     Active Substance: RIBOCICLIB
     Indication: Breast cancer
     Dosage: 600 MG, QD
     Route: 048
  2. KISQALI [Suspect]
     Active Substance: RIBOCICLIB
     Dosage: 200 MG, QD
     Route: 048
  3. KISQALI [Suspect]
     Active Substance: RIBOCICLIB
     Dosage: 400 MG, QD
     Route: 048
  4. KISQALI [Suspect]
     Active Substance: RIBOCICLIB
     Dosage: 200 MG, QD, 1 WEEK
     Route: 048
  5. KISQALI [Suspect]
     Active Substance: RIBOCICLIB
     Dosage: 400 MG, QD, 1 WEEK
     Route: 048
  6. KISQALI [Suspect]
     Active Substance: RIBOCICLIB
     Dosage: 200 MG, QD, 1 WEEK
     Route: 048

REACTIONS (10)
  - Angioedema [Recovered/Resolved]
  - Angioedema [Not Recovered/Not Resolved]
  - Neutropenia [Recovered/Resolved]
  - Visual impairment [Recovered/Resolved]
  - Breast pain [Recovered/Resolved]
  - Swelling [Recovering/Resolving]
  - Ocular hyperaemia [Recovering/Resolving]
  - Tumour marker increased [Not Recovered/Not Resolved]
  - Hepatic pain [Recovered/Resolved]
  - Nausea [Recovered/Resolved]
